FAERS Safety Report 8880433 (Version 1)
Quarter: 2012Q4

REPORT INFORMATION
  Report Type: 
  Country: DE (occurrence: DE)
  Receive Date: 20121031
  Receipt Date: 20121031
  Transmission Date: 20130627
  Serious: Yes (Death, Life-Threatening, Hospitalization, Other)
  Sender: FDA-Public Use
  Company Number: GXKR2012DE003357

PATIENT

DRUGS (1)
  1. ACETYLSALICYLIC ACID [Suspect]
     Indication: ARTERIOSCLEROSIS

REACTIONS (2)
  - Cerebral haemorrhage [Fatal]
  - Brain contusion [Fatal]
